FAERS Safety Report 25934888 (Version 1)
Quarter: 2025Q4

REPORT INFORMATION
  Report Type: Spontaneous
  Country: CN (occurrence: CN)
  Receive Date: 20251017
  Receipt Date: 20251017
  Transmission Date: 20260117
  Serious: Yes (Other)
  Sender: ACCORD
  Company Number: CN-Accord-509001

PATIENT
  Age: 69 Year
  Sex: Male

DRUGS (10)
  1. FLUOROURACIL [Suspect]
     Active Substance: FLUOROURACIL
     Indication: Adenocarcinoma of colon
     Dosage: 3 CYCLES
     Dates: start: 20211129, end: 20220111
  2. IRINOTECAN [Suspect]
     Active Substance: IRINOTECAN
     Indication: Adenocarcinoma of colon
     Dosage: 3 CYCLES
     Dates: start: 20211129, end: 20220111
  3. LEUCOVORIN CALCIUM [Suspect]
     Active Substance: LEUCOVORIN CALCIUM
     Indication: Adenocarcinoma of colon
     Dosage: 3 CYCLES
     Dates: start: 20211129, end: 20220111
  4. INSULIN NOS [Concomitant]
     Active Substance: INSULIN NOS
     Indication: Diabetes mellitus management
     Dosage: LONG TERM USE
  5. FLUOROURACIL [Suspect]
     Active Substance: FLUOROURACIL
     Indication: Metastases to liver
     Dosage: 3 CYCLES
     Dates: start: 20211129, end: 20220111
  6. FLUOROURACIL [Suspect]
     Active Substance: FLUOROURACIL
     Indication: Metastases to lung
     Dosage: 3 CYCLES
     Dates: start: 20211129, end: 20220111
  7. IRINOTECAN [Suspect]
     Active Substance: IRINOTECAN
     Indication: Metastases to lung
     Dosage: 3 CYCLES
     Dates: start: 20211129, end: 20220111
  8. LEUCOVORIN CALCIUM [Suspect]
     Active Substance: LEUCOVORIN CALCIUM
     Indication: Metastases to lung
     Dosage: 3 CYCLES
     Dates: start: 20211129, end: 20220111
  9. IRINOTECAN [Suspect]
     Active Substance: IRINOTECAN
     Indication: Metastases to liver
     Dosage: 3 CYCLES
     Dates: start: 20211129, end: 20220111
  10. LEUCOVORIN CALCIUM [Suspect]
     Active Substance: LEUCOVORIN CALCIUM
     Indication: Metastases to liver
     Dosage: 3 CYCLES
     Dates: start: 20211129, end: 20220111

REACTIONS (2)
  - Gastrointestinal disorder [Unknown]
  - Myelosuppression [Unknown]
